FAERS Safety Report 12095343 (Version 2)
Quarter: 2016Q1

REPORT INFORMATION
  Report Type: Spontaneous
  Country: US (occurrence: US)
  Receive Date: 20160219
  Receipt Date: 20160309
  Transmission Date: 20160526
  Serious: Yes (Hospitalization, Disabling, Other)
  Sender: FDA-Public Use
  Company Number: US-GLAXOSMITHKLINE-US2016023271

PATIENT
  Age: 44 Year
  Sex: Female
  Weight: 154.2 kg

DRUGS (18)
  1. BENLYSTA [Suspect]
     Active Substance: BELIMUMAB
     Indication: SYSTEMIC LUPUS ERYTHEMATOSUS
     Route: 042
     Dates: start: 20120620
  2. ACTHAR [Concomitant]
     Active Substance: CORTICOTROPIN
  3. CYANOCOBALAMIN. [Concomitant]
     Active Substance: CYANOCOBALAMIN
  4. RANITIDINE [Concomitant]
     Active Substance: RANITIDINE\RANITIDINE HYDROCHLORIDE
  5. SOLU-CORTEF [Concomitant]
     Active Substance: HYDROCORTISONE SODIUM SUCCINATE
  6. GABAPENTIN. [Concomitant]
     Active Substance: GABAPENTIN
  7. SULFASALAZINE. [Concomitant]
     Active Substance: SULFASALAZINE
  8. PROMETHAZINE [Concomitant]
     Active Substance: PROMETHAZINE\PROMETHAZINE HYDROCHLORIDE
  9. ALPRAZOLAM. [Concomitant]
     Active Substance: ALPRAZOLAM
  10. HYDROCHLOROTHIAZIDE. [Concomitant]
     Active Substance: HYDROCHLOROTHIAZIDE
  11. PRAMIPEXOLE DIHYDROCHLORIDE. [Concomitant]
     Active Substance: PRAMIPEXOLE DIHYDROCHLORIDE
  12. ETODOLAC. [Concomitant]
     Active Substance: ETODOLAC
  13. LISINOPRIL. [Concomitant]
     Active Substance: LISINOPRIL
  14. VOLTAREN [Concomitant]
     Active Substance: DICLOFENAC SODIUM
  15. FLUOCINONIDE. [Concomitant]
     Active Substance: FLUOCINONIDE
  16. LIDOCAINE GARGLE [Concomitant]
  17. AZATHIOPRINE. [Concomitant]
     Active Substance: AZATHIOPRINE
  18. OXYCODONE [Concomitant]
     Active Substance: OXYCODONE

REACTIONS (3)
  - Rehabilitation therapy [Unknown]
  - Cerebrovascular accident [Recovering/Resolving]
  - Hospitalisation [Unknown]

NARRATIVE: CASE EVENT DATE: 20160124
